FAERS Safety Report 17473451 (Version 1)
Quarter: 2020Q1

REPORT INFORMATION
  Report Type: Report from Study
  Country: JP (occurrence: JP)
  Receive Date: 20200228
  Receipt Date: 20200228
  Transmission Date: 20200409
  Serious: Yes (Other)
  Sender: FDA-Public Use
  Company Number: JP-JNJFOC-20190625449

PATIENT
  Age: 45 Year
  Sex: Female
  Weight: 51 kg

DRUGS (8)
  1. NEXIUM [Concomitant]
     Active Substance: ESOMEPRAZOLE MAGNESIUM
     Indication: PROPHYLAXIS
     Route: 048
  2. ZENTACORT [Suspect]
     Active Substance: BUDESONIDE
     Route: 048
     Dates: start: 20190126, end: 20190208
  3. ZENTACORT [Suspect]
     Active Substance: BUDESONIDE
     Route: 048
     Dates: start: 20190517, end: 20190531
  4. BEZATOL [Concomitant]
     Active Substance: BEZAFIBRATE
     Route: 048
  5. USTEKINUMAB SOLUTION FOR INJECTION [Suspect]
     Active Substance: USTEKINUMAB
     Indication: CROHN^S DISEASE
     Dosage: USTEKINUMAB(GENETICAL RECOMBINATION):130MG
     Route: 041
     Dates: start: 20190410, end: 20190410
  6. USTEKINUMAB SOLUTION FOR INJECTION [Suspect]
     Active Substance: USTEKINUMAB
     Dosage: USTEKINUMAB (GENETICAL RECOMBINATION): 45 MG
     Route: 058
     Dates: start: 20190607
  7. ZENTACORT [Suspect]
     Active Substance: BUDESONIDE
     Indication: CROHN^S DISEASE
     Route: 048
     Dates: end: 20190125
  8. PENTASA [Concomitant]
     Active Substance: MESALAMINE
     Indication: CROHN^S DISEASE
     Route: 048

REACTIONS (1)
  - Pneumonia [Recovered/Resolved]

NARRATIVE: CASE EVENT DATE: 20190531
